FAERS Safety Report 9149899 (Version 1)
Quarter: 2013Q1

REPORT INFORMATION
  Report Type: Spontaneous
  Country: US (occurrence: None)
  Receive Date: 20130301
  Receipt Date: 20130301
  Transmission Date: 20140127
  Serious: Yes (Other)
  Sender: FDA-Public Use
  Company Number: None

PATIENT
  Age: 56 Year
  Sex: Female
  Weight: 77.11 kg

DRUGS (1)
  1. ALENDRONATE SODIUM 70 MG ARROW PHARM -MALTA- LIMITED [Suspect]
     Indication: BONE DENSITY DECREASED
     Dosage: 1 TABLET  WEEKLY  PO
     Route: 048
     Dates: start: 20130220, end: 20130227

REACTIONS (7)
  - Headache [None]
  - Eye pain [None]
  - Toothache [None]
  - Arthralgia [None]
  - Back pain [None]
  - Musculoskeletal chest pain [None]
  - Swelling [None]
